FAERS Safety Report 5634636-7 (Version None)
Quarter: 2008Q1

REPORT INFORMATION
  Report Type: 
  Country: None (occurrence: None)
  Receive Date: 20080131
  Receipt Date: 20071126
  Transmission Date: 20080703
  Serious: No
  Sender: FDA-Public Use
  Company Number: 163-21880-07111427

PATIENT
  Age: 88 Year
  Sex: Female
  Weight: 48.5349 kg

DRUGS (14)
  1. REVLIMID [Suspect]
     Indication: MULTIPLE MYELOMA
     Dosage: 5 MG, DAILY EXCEPT MONDAY AND THURSDAY, ORAL ; 5 MG, 1 IN 1 D, ORAL
     Route: 048
     Dates: start: 20061208, end: 20070701
  2. REVLIMID [Suspect]
     Indication: MULTIPLE MYELOMA
     Dosage: 5 MG, DAILY EXCEPT MONDAY AND THURSDAY, ORAL ; 5 MG, 1 IN 1 D, ORAL
     Route: 048
     Dates: start: 20070723
  3. PLAVIX [Concomitant]
  4. DIGOXIN [Concomitant]
  5. BUMEX [Concomitant]
  6. LEVOTHYROXINE SODIUM [Concomitant]
  7. NIFEDIPINE [Concomitant]
  8. METOPROLOL TARTRATE [Concomitant]
  9. ZOLOFT [Concomitant]
  10. SIMVASTATIN [Concomitant]
  11. LORAZEPAM [Concomitant]
  12. ADVAIR DISKUS 100/50 [Concomitant]
  13. SPIRIVA [Concomitant]
  14. POLYETH [Concomitant]

REACTIONS (1)
  - LABORATORY TEST ABNORMAL [None]
